FAERS Safety Report 5140311-8 (Version None)
Quarter: 2006Q4

REPORT INFORMATION
  Report Type: 
  Country: None (occurrence: None)
  Receive Date: 20061031
  Receipt Date: 20061025
  Transmission Date: 20070319
  Serious: Yes (Other)
  Sender: FDA-Public Use
  Company Number: GB-GLAXOSMITHKLINE-B0444516A

PATIENT
  Age: 36 Year
  Sex: Female

DRUGS (1)
  1. CEFUROXIME [Suspect]
     Indication: ANTIBIOTIC PROPHYLAXIS
     Route: 042
     Dates: start: 20060929, end: 20060929

REACTIONS (2)
  - DYSPNOEA [None]
  - PRURITUS [None]
